FAERS Safety Report 15586569 (Version 1)
Quarter: 2018Q4

REPORT INFORMATION
  Report Type: Report from Study
  Country: US (occurrence: US)
  Receive Date: 20181105
  Receipt Date: 20181105
  Transmission Date: 20190205
  Serious: No
  Sender: FDA-Public Use
  Company Number: US-ALEXION PHARMACEUTICALS INC.-A201814201

PATIENT
  Age: 60 Year
  Sex: Female

DRUGS (1)
  1. STRENSIQ [Suspect]
     Active Substance: ASFOTASE ALFA
     Indication: HYPOPHOSPHATASIA
     Dosage: 0.54, SIX TIMES/WEEK
     Route: 065
     Dates: start: 20150603

REACTIONS (6)
  - Injection site discolouration [Recovered/Resolved]
  - Injection site pruritus [Recovered/Resolved]
  - Dermatitis allergic [Recovered/Resolved]
  - Injection site swelling [Recovered/Resolved]
  - Post procedural complication [Unknown]
  - Injection site hypertrophy [Unknown]

NARRATIVE: CASE EVENT DATE: 20150603
